FAERS Safety Report 9153499 (Version 1)
Quarter: 2013Q1

REPORT INFORMATION
  Report Type: Spontaneous
  Country: US (occurrence: None)
  Receive Date: 20130306
  Receipt Date: 20130306
  Transmission Date: 20140127
  Serious: Yes (Other)
  Sender: FDA-Public Use
  Company Number: None

PATIENT
  Sex: Male

DRUGS (1)
  1. ZELBORAF 240MG [Suspect]
     Dosage: 960MG BID PO
     Route: 048
     Dates: start: 20130921

REACTIONS (2)
  - Pain [None]
  - Inadequate analgesia [None]
